FAERS Safety Report 10588861 (Version 2)
Quarter: 2014Q4

REPORT INFORMATION
  Report Type: Spontaneous
  Country: FR (occurrence: FR)
  Receive Date: 20141117
  Receipt Date: 20141201
  Transmission Date: 20150529
  Serious: Yes (Hospitalization)
  Sender: FDA-Public Use
  Company Number: FR-SA-2014SA154047

PATIENT
  Age: 91 Year
  Sex: Female

DRUGS (9)
  1. VIT K ANTAGONISTS [Concomitant]
     Active Substance: UNSPECIFIED INGREDIENT
  2. CORVASAL [Concomitant]
     Active Substance: LINSIDOMINE
     Dosage: STRENGTH:2MG
  3. LASILIX FAIBLE [Concomitant]
     Active Substance: FUROSEMIDE
     Dosage: 20MG
  4. PREVISCAN [Suspect]
     Active Substance: FLUINDIONE
     Indication: THROMBOEMBOLECTOMY
     Dosage: PREVISCAN 20 MG
     Route: 048
     Dates: start: 201302, end: 20130214
  5. KARDEGIC [Suspect]
     Active Substance: ASPIRIN LYSINE
     Indication: THROMBOEMBOLECTOMY
     Route: 048
     Dates: start: 201302
  6. DOLIPRANE [Concomitant]
     Active Substance: ACETAMINOPHEN
     Dosage: 500MG.
  7. TOPALGIC [Concomitant]
     Active Substance: TRAMADOL
     Dosage: 100MG.
  8. LOVENOX [Suspect]
     Active Substance: ENOXAPARIN SODIUM
     Indication: THROMBOEMBOLECTOMY
     Route: 058
     Dates: start: 201302, end: 20130214
  9. CRESTOR [Concomitant]
     Active Substance: ROSUVASTATIN CALCIUM
     Dosage: STRENGTH:5MG

REACTIONS (3)
  - Anaemia [Recovered/Resolved]
  - International normalised ratio increased [Recovered/Resolved]
  - Haematoma [Recovered/Resolved]

NARRATIVE: CASE EVENT DATE: 20130214
